FAERS Safety Report 7788191-6 (Version None)
Quarter: 2011Q3

REPORT INFORMATION
  Report Type: 
  Country: None (occurrence: None)
  Receive Date: 20110930
  Receipt Date: 20110919
  Transmission Date: 20111222
  Serious: Yes (Hospitalization)
  Sender: FDA-Public Use
  Company Number: US-JNJFOC-20110908154

PATIENT
  Age: 58 Year
  Sex: Male
  Weight: 79 kg

DRUGS (16)
  1. GLIPIZIDE [Concomitant]
  2. LASIX [Concomitant]
  3. LISPRO INSULIN [Concomitant]
  4. NITROGLYCERIN [Concomitant]
  5. TYLENOL-500 [Concomitant]
  6. HEPARIN [Concomitant]
  7. ASPIRIN [Concomitant]
  8. PREDNISONE [Concomitant]
  9. NICOTINE [Concomitant]
  10. DUONEB [Concomitant]
  11. SOTALOL HCL [Concomitant]
  12. SIMPONI [Suspect]
     Indication: RHEUMATOID ARTHRITIS
     Route: 058
     Dates: end: 20110101
  13. TRAMADOL [Concomitant]
  14. METHYLPREDNISOLONE [Concomitant]
  15. POTASSIUM CHLORIDE [Concomitant]
  16. METFORMIN HCL [Concomitant]

REACTIONS (4)
  - RHINORRHOEA [None]
  - COUGH [None]
  - CHEST PAIN [None]
  - PAIN [None]
